FAERS Safety Report 5718403-1 (Version None)
Quarter: 2008Q2

REPORT INFORMATION
  Report Type: 
  Country: None (occurrence: None)
  Receive Date: 20080425
  Receipt Date: 20080417
  Transmission Date: 20081010
  Serious: Yes (Death, Life-Threatening, Hospitalization, Disabling, Other)
  Sender: FDA-Public Use
  Company Number: A0707166A

PATIENT
  Age: 62 Year
  Sex: Female
  Weight: 62.3 kg

DRUGS (3)
  1. BEXXAR [Suspect]
     Indication: NON-HODGKIN'S LYMPHOMA
     Dosage: 96.9MCI UNKNOWN
     Route: 042
     Dates: start: 20071115, end: 20071127
  2. DEXAMETHASONE TAB [Concomitant]
  3. DECADRON [Concomitant]
     Dates: end: 20071224

REACTIONS (7)
  - ACUTE RESPIRATORY DISTRESS SYNDROME [None]
  - HYPERGLYCAEMIA [None]
  - LEUKOPENIA [None]
  - METABOLIC ACIDOSIS [None]
  - PANCYTOPENIA [None]
  - PNEUMONIA [None]
  - RESPIRATORY FAILURE [None]
